FAERS Safety Report 5512334-8 (Version None)
Quarter: 2007Q4

REPORT INFORMATION
  Report Type: 
  Country: None (occurrence: None)
  Receive Date: 20071107
  Receipt Date: 20071023
  Transmission Date: 20080405
  Serious: Yes (Death)
  Sender: FDA-Public Use
  Company Number: S07-FRA-05782-01

PATIENT
  Age: 93 Year
  Sex: Female

DRUGS (6)
  1. ESCITALOPRAM [Suspect]
     Dosage: 10 MG QD PO
     Route: 048
     Dates: end: 20070625
  2. KARDEGIC (ACETYLSALICYLIC LYSINE) [Suspect]
     Indication: TRANSIENT ISCHAEMIC ATTACK
     Dosage: 75 MG QD PO
     Route: 048
     Dates: start: 20070401, end: 20070622
  3. ZALDIAR (PARACETAMOL/TRAMADOL) [Concomitant]
  4. ACETAMINOPHEN [Concomitant]
  5. MOVICOL [Concomitant]
  6. DENSICAL D3 (CALCIUM CARBONATE/COLECALCIFEROL) [Concomitant]

REACTIONS (9)
  - BLOOD UREA INCREASED [None]
  - HAEMATOMA [None]
  - HAEMORRHAGIC STROKE [None]
  - HYPERKALAEMIA [None]
  - HYPERTHERMIA [None]
  - HYPONATRAEMIA [None]
  - INCREASED BRONCHIAL SECRETION [None]
  - INTRAVENTRICULAR HAEMORRHAGE [None]
  - MENINGORRHAGIA [None]
